FAERS Safety Report 24425214 (Version 3)
Quarter: 2024Q4

REPORT INFORMATION
  Report Type: Spontaneous
  Country: ES (occurrence: ES)
  Receive Date: 20241010
  Receipt Date: 20241028
  Transmission Date: 20250114
  Serious: Yes (Hospitalization, Other)
  Sender: SANDOZ
  Company Number: ES-LESVI-2020070678

PATIENT
  Age: 78 Year
  Sex: Male

DRUGS (22)
  1. AMIKACIN [Suspect]
     Active Substance: AMIKACIN
     Indication: Osteomyelitis
     Dosage: UNK
     Route: 065
  2. AMIKACIN [Suspect]
     Active Substance: AMIKACIN
     Indication: Infection
  3. AMIKACIN [Suspect]
     Active Substance: AMIKACIN
     Indication: Pseudomonas infection
  4. AMIKACIN [Suspect]
     Active Substance: AMIKACIN
     Indication: Staphylococcal infection
  5. CEFTAZIDIME [Suspect]
     Active Substance: CEFTAZIDIME
     Indication: Osteomyelitis
     Dosage: UNK
     Route: 065
  6. CEFTAZIDIME [Suspect]
     Active Substance: CEFTAZIDIME
     Indication: Infection
  7. CEFTAZIDIME [Suspect]
     Active Substance: CEFTAZIDIME
     Indication: Pseudomonas infection
  8. CEFTAZIDIME [Suspect]
     Active Substance: CEFTAZIDIME
     Indication: Staphylococcal infection
  9. LEVOFLOXACIN [Suspect]
     Active Substance: LEVOFLOXACIN
     Dosage: 0.05 MG
     Route: 042
  10. LEVOFLOXACIN [Suspect]
     Active Substance: LEVOFLOXACIN
     Indication: Osteomyelitis
     Dosage: 0.1 MG
     Route: 042
  11. LEVOFLOXACIN [Suspect]
     Active Substance: LEVOFLOXACIN
     Dosage: 0.25 MG
     Route: 042
  12. LEVOFLOXACIN [Suspect]
     Active Substance: LEVOFLOXACIN
     Indication: Pseudomonas infection
     Dosage: 1 MG
     Route: 042
  13. LEVOFLOXACIN [Suspect]
     Active Substance: LEVOFLOXACIN
     Indication: Pseudomonas infection
     Dosage: 10 MG
     Route: 048
  14. LEVOFLOXACIN [Suspect]
     Active Substance: LEVOFLOXACIN
     Dosage: 125 MG
     Route: 042
  15. LEVOFLOXACIN [Suspect]
     Active Substance: LEVOFLOXACIN
     Indication: Staphylococcal infection
     Dosage: 25 MG
     Route: 042
  16. LEVOFLOXACIN [Suspect]
     Active Substance: LEVOFLOXACIN
     Indication: Osteomyelitis
     Dosage: 250 MG
     Route: 048
  17. LEVOFLOXACIN [Suspect]
     Active Substance: LEVOFLOXACIN
     Dosage: 3 MG
     Route: 042
  18. LEVOFLOXACIN [Suspect]
     Active Substance: LEVOFLOXACIN
     Dosage: 300 MG
     Route: 042
  19. LEVOFLOXACIN [Suspect]
     Active Substance: LEVOFLOXACIN
     Indication: Infection
     Dosage: 50 MG
     Route: 042
  20. LEVOFLOXACIN [Suspect]
     Active Substance: LEVOFLOXACIN
     Indication: Staphylococcal infection
     Dosage: UNK
     Route: 048
  21. LEVOFLOXACIN [Suspect]
     Active Substance: LEVOFLOXACIN
     Indication: Infection
  22. CEFAZOLIN [Concomitant]
     Active Substance: CEFAZOLIN
     Indication: Product used for unknown indication
     Dosage: UNK
     Route: 065

REACTIONS (3)
  - Toxic skin eruption [Recovered/Resolved]
  - Condition aggravated [Recovering/Resolving]
  - Therapeutic product effect incomplete [Unknown]
